FAERS Safety Report 4976170-3 (Version None)
Quarter: 2006Q2

REPORT INFORMATION
  Report Type: 
  Country: None (occurrence: None)
  Receive Date: 20060412
  Receipt Date: 20060328
  Transmission Date: 20061013
  Serious: Yes (Death, Hospitalization)
  Sender: FDA-Public Use
  Company Number: PAR_0582_2006

PATIENT
  Age: 40 Year
  Sex: Male

DRUGS (2)
  1. SULFAMETHOXAZOLE + TRIMETHOPRIM [Suspect]
     Indication: POSTOPERATIVE FEVER
     Dosage: 480 MG BID PO
     Route: 048
  2. LEVOFLOXACIN [Concomitant]

REACTIONS (8)
  - BONE MARROW FAILURE [None]
  - CANDIDIASIS [None]
  - DERMATITIS EXFOLIATIVE [None]
  - DRUG HYPERSENSITIVITY [None]
  - ESCHERICHIA INFECTION [None]
  - FEBRILE NEUTROPENIA [None]
  - PATHOGEN RESISTANCE [None]
  - THERAPY NON-RESPONDER [None]
